FAERS Safety Report 6697787-4 (Version None)
Quarter: 2010Q2

REPORT INFORMATION
  Report Type: 
  Country: None (occurrence: None)
  Receive Date: 20100423
  Receipt Date: 20100412
  Transmission Date: 20101027
  Serious: Yes (Hospitalization)
  Sender: FDA-Public Use
  Company Number: 010367

PATIENT
  Age: 22 Year
  Sex: Female

DRUGS (1)
  1. LEVETIRACETAM [Suspect]
     Dosage: (100 MG ORAL)
     Route: 048
     Dates: start: 20091008, end: 20100408

REACTIONS (2)
  - APHASIA [None]
  - COGNITIVE DISORDER [None]
